FAERS Safety Report 7074010-2 (Version None)
Quarter: 2010Q4

REPORT INFORMATION
  Report Type: 
  Country: None (occurrence: None)
  Receive Date: 20101029
  Receipt Date: 20101020
  Transmission Date: 20110411
  Serious: Yes (Other)
  Sender: FDA-Public Use
  Company Number: US-JNJCH-2010024214

PATIENT
  Age: 48 Year
  Sex: Male

DRUGS (1)
  1. ROGAINE [Suspect]
     Indication: ALCOHOL USE
     Dosage: TEXT:ENTIRE 8 OZ. BOTTLE
     Route: 048

REACTIONS (3)
  - DRUG TOXICITY [None]
  - INCORRECT ROUTE OF DRUG ADMINISTRATION [None]
  - INTENTIONAL DRUG MISUSE [None]
